FAERS Safety Report 6625171-8 (Version None)
Quarter: 2010Q1

REPORT INFORMATION
  Report Type: 
  Country: None (occurrence: None)
  Receive Date: 20100310
  Receipt Date: 20090908
  Transmission Date: 20100710
  Serious: No
  Sender: FDA-Public Use
  Company Number: US-BIOGENIDEC-2009BI028449

PATIENT
  Sex: Female

DRUGS (4)
  1. AVONEX [Suspect]
     Indication: MULTIPLE SCLEROSIS
     Route: 030
     Dates: start: 20020904, end: 20090801
  2. AVONEX [Suspect]
     Route: 030
     Dates: start: 20090903
  3. MILK OF MAGNESIA TAB [Concomitant]
     Indication: GASTROINTESTINAL DISORDER
  4. CITRUCEL [Concomitant]
     Indication: GASTROINTESTINAL DISORDER

REACTIONS (3)
  - BLOOD CHOLESTEROL INCREASED [None]
  - DIABETES MELLITUS [None]
  - URINARY INCONTINENCE [None]
